FAERS Safety Report 7417135-1 (Version None)
Quarter: 2011Q2

REPORT INFORMATION
  Report Type: 
  Country: None (occurrence: None)
  Receive Date: 20110412
  Receipt Date: 20110412
  Transmission Date: 20111010
  Serious: Yes (Other)
  Sender: FDA-Public Use
  Company Number: None

PATIENT
  Sex: Female
  Weight: 68.0396 kg

DRUGS (1)
  1. TRILEPTAL [Suspect]
     Indication: MOOD SWINGS
     Dosage: 600 2X
     Dates: start: 20080601, end: 20110101

REACTIONS (21)
  - COORDINATION ABNORMAL [None]
  - AGITATION [None]
  - DISCOMFORT [None]
  - EYE MOVEMENT DISORDER [None]
  - FATIGUE [None]
  - DYSPHONIA [None]
  - MOOD ALTERED [None]
  - IMPULSIVE BEHAVIOUR [None]
  - DYSKINESIA [None]
  - DEPRESSED LEVEL OF CONSCIOUSNESS [None]
  - SLEEP DISORDER [None]
  - ANXIETY [None]
  - HEART RATE IRREGULAR [None]
  - CONFUSIONAL STATE [None]
  - AMNESIA [None]
  - ASTHENIA [None]
  - CHEST PAIN [None]
  - DRY MOUTH [None]
  - DIZZINESS [None]
  - HYPOAESTHESIA [None]
  - HEADACHE [None]
